FAERS Safety Report 19076950 (Version 1)
Quarter: 2021Q1

REPORT INFORMATION
  Report Type: Spontaneous
  Country: US (occurrence: US)
  Receive Date: 20210330
  Receipt Date: 20210330
  Transmission Date: 20210420
  Serious: Yes (Hospitalization)
  Sender: FDA-Public Use
  Company Number: None

PATIENT
  Age: 64 Year
  Sex: Female

DRUGS (22)
  1. AMBIEN [Concomitant]
     Active Substance: ZOLPIDEM TARTRATE
  2. BACLOFEN. [Concomitant]
     Active Substance: BACLOFEN
  3. TIZANIDINE. [Concomitant]
     Active Substance: TIZANIDINE
  4. MECLIZINE [Concomitant]
     Active Substance: MECLIZINE HYDROCHLORIDE
  5. PROBIOTIC [Concomitant]
     Active Substance: PROBIOTICS NOS
  6. PROTONIX [Concomitant]
     Active Substance: PANTOPRAZOLE SODIUM
  7. BIOTIN [Concomitant]
     Active Substance: BIOTIN
  8. DIAZEPAM. [Concomitant]
     Active Substance: DIAZEPAM
  9. POTASSIUM [Concomitant]
     Active Substance: POTASSIUM
  10. BACTRIM [Concomitant]
     Active Substance: SULFAMETHOXAZOLE\TRIMETHOPRIM
  11. BYSTOLIC [Concomitant]
     Active Substance: NEBIVOLOL HYDROCHLORIDE
  12. LYRICA [Concomitant]
     Active Substance: PREGABALIN
  13. ELIQUIS [Concomitant]
     Active Substance: APIXABAN
  14. METHYLPRED [Concomitant]
     Active Substance: METHYLPREDNISOLONE
  15. PANTOPRAZOLE [Concomitant]
     Active Substance: PANTOPRAZOLE
  16. VESICARE [Concomitant]
     Active Substance: SOLIFENACIN SUCCINATE
  17. SERTRALINE [Concomitant]
     Active Substance: SERTRALINE HYDROCHLORIDE
  18. DALFAMPRIDINE. [Suspect]
     Active Substance: DALFAMPRIDINE
     Indication: MULTIPLE SCLEROSIS
     Route: 048
  19. AMANTADINE. [Concomitant]
     Active Substance: AMANTADINE HYDROCHLORIDE
  20. AMPYRA [Concomitant]
     Active Substance: DALFAMPRIDINE
  21. MIDODRINE [Concomitant]
     Active Substance: MIDODRINE
  22. RITUXAN [Concomitant]
     Active Substance: RITUXIMAB

REACTIONS (4)
  - COVID-19 pneumonia [None]
  - Fatigue [None]
  - Pulmonary embolism [None]
  - Mobility decreased [None]

NARRATIVE: CASE EVENT DATE: 20210329
